FAERS Safety Report 4972347-1 (Version None)
Quarter: 2006Q2

REPORT INFORMATION
  Report Type: 
  Country: None (occurrence: None)
  Receive Date: 20060413
  Receipt Date: 20060404
  Transmission Date: 20061013
  Serious: Yes (Hospitalization, Other)
  Sender: FDA-Public Use
  Company Number: US-ABBOTT-06P-163-0329853-00

PATIENT
  Age: 85 Year
  Sex: Male

DRUGS (11)
  1. HYTRIN [Interacting]
     Indication: DRUG USE FOR UNKNOWN INDICATION
     Route: 048
     Dates: end: 20060301
  2. MEMANTINE HCL [Suspect]
     Indication: COGNITIVE DISORDER
     Route: 048
     Dates: start: 20050301, end: 20060301
  3. SINEMET [Suspect]
     Indication: PARKINSON'S DISEASE
     Route: 048
  4. BUPROPION HYDROCHLORIDE [Concomitant]
     Indication: DRUG USE FOR UNKNOWN INDICATION
  5. GALANTAMINE HYDROBROMIDE [Concomitant]
     Indication: DRUG USE FOR UNKNOWN INDICATION
     Dates: end: 20060301
  6. MODAFINIL [Concomitant]
     Indication: DRUG USE FOR UNKNOWN INDICATION
  7. PRIMIDONE [Concomitant]
     Indication: DRUG USE FOR UNKNOWN INDICATION
  8. PRAMIPEXOLE DIHYDROCHLORIDE [Concomitant]
     Indication: DRUG USE FOR UNKNOWN INDICATION
  9. CALCIUM CARBONATE [Concomitant]
     Indication: DRUG USE FOR UNKNOWN INDICATION
  10. LAMOTRIGINE [Concomitant]
     Indication: CONVULSION
  11. PHENYTOIN SODIUM [Concomitant]
     Indication: CONVULSION

REACTIONS (6)
  - DRUG INTERACTION [None]
  - HYPOTENSION [None]
  - MEMORY IMPAIRMENT [None]
  - MENINGIOMA BENIGN [None]
  - PERSONALITY CHANGE [None]
  - SYNCOPE [None]
